FAERS Safety Report 5179128-7 (Version None)
Quarter: 2006Q4

REPORT INFORMATION
  Report Type: 
  Country: None (occurrence: None)
  Receive Date: 20061219
  Receipt Date: 20061206
  Transmission Date: 20070319
  Serious: Yes (Other)
  Sender: FDA-Public Use
  Company Number: PHBS2006GB19035

PATIENT
  Age: 30 Year
  Sex: Female

DRUGS (4)
  1. NEORAL [Suspect]
     Indication: RENAL TRANSPLANT
     Dosage: 100 MG, BID
     Route: 048
  2. AZATHIOPRINE [Concomitant]
     Indication: RENAL TRANSPLANT
     Dosage: 100 MG, QD
  3. PREDNISOLONE [Concomitant]
     Indication: RENAL TRANSPLANT
     Dosage: 5 MG, QD
  4. CEPHALEXIN [Concomitant]
     Dosage: 250 MG, QD

REACTIONS (8)
  - CHOLESTASIS OF PREGNANCY [None]
  - DRUG EXPOSURE DURING PREGNANCY [None]
  - FOETAL DISTRESS SYNDROME [None]
  - KIDNEY TRANSPLANT REJECTION [None]
  - PRE-ECLAMPSIA [None]
  - PREMATURE LABOUR [None]
  - PRURITUS [None]
  - TOTAL BILE ACIDS INCREASED [None]
